FAERS Safety Report 6793151-8 (Version None)
Quarter: 2010Q2

REPORT INFORMATION
  Report Type: 
  Country: None (occurrence: None)
  Receive Date: 20100624
  Receipt Date: 20090806
  Transmission Date: 20101027
  Serious: Yes (Other)
  Sender: FDA-Public Use
  Company Number: US-MYLANLABS-2009S1010305

PATIENT
  Age: 36 Year
  Sex: Female

DRUGS (14)
  1. CLOZAPINE [Suspect]
     Indication: SCHIZOPHRENIA
     Route: 048
     Dates: start: 20090505
  2. CLOZAPINE [Suspect]
     Indication: PSYCHOTIC DISORDER
     Route: 048
     Dates: start: 20090505
  3. CLOZAPINE [Suspect]
     Route: 048
     Dates: end: 20090609
  4. CLOZAPINE [Suspect]
     Route: 048
     Dates: end: 20090609
  5. CLOZAPINE [Suspect]
     Route: 048
     Dates: end: 20090609
  6. CLOZAPINE [Suspect]
     Route: 048
     Dates: end: 20090609
  7. DEPAKOTE ER [Concomitant]
  8. HYDROXYZINE PAM [Concomitant]
  9. SEROQUEL [Concomitant]
  10. PROPRANOLOL [Concomitant]
  11. OMEPRAZOLE [Concomitant]
  12. BENZTROPINE MESYLATE [Concomitant]
  13. FLUTICASONE [Concomitant]
  14. ADVAIR DISKUS 100/50 [Concomitant]

REACTIONS (2)
  - EOSINOPHILIA [None]
  - GRANULOCYTOPENIA [None]
